FAERS Safety Report 16630310 (Version 3)
Quarter: 2019Q3

REPORT INFORMATION
  Report Type: Spontaneous
  Country: BE (occurrence: BE)
  Receive Date: 20190725
  Receipt Date: 20190812
  Transmission Date: 20191004
  Serious: Yes (Hospitalization)
  Sender: FDA-Public Use
  Company Number: BE-ACCORD-148644

PATIENT
  Age: 70 Year
  Sex: Male

DRUGS (7)
  1. ZOCOR [Concomitant]
     Active Substance: SIMVASTATIN
     Dosage: 40 MG
     Route: 048
  2. FLURACEDYL [Concomitant]
     Active Substance: FLUOROURACIL
     Dosage: 3/2018 - 06/2018: ADJUVANT CHEMOTHERAPY WITH FOLFOX 05/06/2019: START?OF FOLFOX + VECTIBIX
     Dates: start: 201803
  3. VECTIBIX [Concomitant]
     Active Substance: PANITUMUMAB
     Dosage: 05/06/2019: START FOLFOX + VECTIBIX
     Route: 042
     Dates: start: 20190605
  4. AMLODIPINE [Concomitant]
     Active Substance: AMLODIPINE BESYLATE
     Route: 048
  5. ALLOPURINOL. [Concomitant]
     Active Substance: ALLOPURINOL
     Route: 048
  6. OXALIPLATIN. [Suspect]
     Active Substance: OXALIPLATIN
     Indication: PRODUCT USED FOR UNKNOWN INDICATION
     Dosage: MAR-2018 - JUN-2018: ADJUVANT CHEMOTHERAPY WITH FOLFOX 05-JUN-19: START?OF FOLFOX + VECTIBIX
     Route: 042
     Dates: start: 201803
  7. BELSAR [Concomitant]
     Dosage: 40 MG/25 MG
     Route: 048

REACTIONS (6)
  - Oxygen saturation decreased [Recovered/Resolved]
  - Hypersensitivity [Recovered/Resolved]
  - Hypotension [Recovered/Resolved]
  - Urinary incontinence [Recovered/Resolved]
  - Hyperhidrosis [Recovered/Resolved]
  - Loss of consciousness [Recovered/Resolved]

NARRATIVE: CASE EVENT DATE: 20190619
